FAERS Safety Report 21935416 (Version 1)
Quarter: 2023Q1

REPORT INFORMATION
  Report Type: Spontaneous
  Country: US (occurrence: None)
  Receive Date: 20230131
  Receipt Date: 20230131
  Transmission Date: 20230418
  Serious: No
  Sender: FDA-Public Use
  Company Number: None

PATIENT
  Age: 57 Year
  Sex: Male
  Weight: 76 kg

DRUGS (1)
  1. APIXABAN [Suspect]
     Active Substance: APIXABAN
     Indication: Pulmonary embolism
     Dosage: FREQUENCY : DAILY;?
     Route: 048
     Dates: start: 20220324

REACTIONS (8)
  - Abdominal discomfort [None]
  - Hyperglycaemia [None]
  - Hypovolaemia [None]
  - Gastric haemorrhage [None]
  - Haemoglobin decreased [None]
  - Haematocrit decreased [None]
  - Insomnia [None]
  - Hypophagia [None]

NARRATIVE: CASE EVENT DATE: 20220705
